FAERS Safety Report 24331940 (Version 3)
Quarter: 2025Q1

REPORT INFORMATION
  Report Type: Spontaneous
  Country: FR (occurrence: FR)
  Receive Date: 20240918
  Receipt Date: 20250325
  Transmission Date: 20250409
  Serious: Yes (Congenital Anomaly, Other)
  Sender: SANDOZ
  Company Number: FR-AMGEN-FRASP2024175293

PATIENT
  Age: 37 Year
  Sex: Female

DRUGS (19)
  1. CYCLOSPORINE [Suspect]
     Active Substance: CYCLOSPORINE
     Indication: Immunosuppressant drug therapy
     Route: 065
  2. CYCLOSPORINE [Suspect]
     Active Substance: CYCLOSPORINE
     Indication: Follicular lymphoma
  3. ELTROMBOPAG [Suspect]
     Active Substance: ELTROMBOPAG
     Indication: Pancytopenia
     Route: 065
  4. FILGRASTIM [Suspect]
     Active Substance: FILGRASTIM
     Indication: Neutropenia
     Route: 065
  5. RITUXIMAB [Suspect]
     Active Substance: RITUXIMAB
     Indication: Follicular lymphoma
     Route: 065
  6. RITUXIMAB [Suspect]
     Active Substance: RITUXIMAB
     Indication: Immunosuppressant drug therapy
     Route: 065
  7. RITUXIMAB [Suspect]
     Active Substance: RITUXIMAB
     Indication: Product used for unknown indication
  8. RITUXIMAB [Suspect]
     Active Substance: RITUXIMAB
     Indication: Product used for unknown indication
  9. RITUXIMAB [Suspect]
     Active Substance: RITUXIMAB
     Indication: Product used for unknown indication
  10. ROMIPLOSTIM [Suspect]
     Active Substance: ROMIPLOSTIM
     Indication: Off label use
     Route: 065
  11. ROMIPLOSTIM [Suspect]
     Active Substance: ROMIPLOSTIM
     Indication: Cytopenia
  12. ROMIPLOSTIM [Suspect]
     Active Substance: ROMIPLOSTIM
     Indication: Thrombocytopenia
  13. AMOXICILLIN [Concomitant]
     Active Substance: AMOXICILLIN
     Indication: Prophylaxis
     Route: 065
  14. AZITHROMYCIN [Concomitant]
     Active Substance: AZITHROMYCIN
     Indication: Product used for unknown indication
     Dosage: 250 MG, TID (STARTED FROM D140)
     Route: 065
  15. COTRIMOXAZOLE [Concomitant]
     Active Substance: SULFAMETHOXAZOLE\TRIMETHOPRIM
     Indication: Prophylaxis
     Route: 065
  16. LETERMOVIR [Concomitant]
     Active Substance: LETERMOVIR
     Indication: Prophylaxis
     Route: 065
  17. PIPERACILLIN AND TAZOBACTAM [Concomitant]
     Active Substance: PIPERACILLIN SODIUM\TAZOBACTAM SODIUM
     Indication: Pyrexia
     Route: 065
  18. POSACONAZOLE [Concomitant]
     Active Substance: POSACONAZOLE
     Indication: Neutropenia
     Route: 065
  19. VALACYCLOVIR [Concomitant]
     Active Substance: VALACYCLOVIR HYDROCHLORIDE
     Indication: Prophylaxis
     Route: 065

REACTIONS (9)
  - Influenza [Recovering/Resolving]
  - Pneumonia [Unknown]
  - Hypogammaglobulinaemia [Unknown]
  - HCoV-OC43 infection [Recovering/Resolving]
  - Pancytopenia [Unknown]
  - Sinusitis [Unknown]
  - Obstructive airways disorder [Unknown]
  - Drug ineffective for unapproved indication [Unknown]
  - Off label use [Unknown]
